FAERS Safety Report 5984524-1 (Version None)
Quarter: 2008Q4

REPORT INFORMATION
  Report Type: 
  Country: None (occurrence: None)
  Receive Date: 20081208
  Receipt Date: 20080822
  Transmission Date: 20090506
  Serious: No
  Sender: FDA-Public Use
  Company Number: US-AMGEN-KDL303350

PATIENT
  Sex: Female

DRUGS (3)
  1. ENBREL [Suspect]
     Indication: JUVENILE ARTHRITIS
     Route: 058
     Dates: start: 20080718
  2. MOBIC [Concomitant]
     Route: 048
  3. METHOTREXATE [Concomitant]

REACTIONS (2)
  - AGGRESSION [None]
  - RASH MACULAR [None]
